FAERS Safety Report 25329061 (Version 1)
Quarter: 2025Q2

REPORT INFORMATION
  Report Type: Spontaneous
  Country: DE (occurrence: DE)
  Receive Date: 20250519
  Receipt Date: 20250519
  Transmission Date: 20250716
  Serious: Yes (Other)
  Sender: AMGEN
  Company Number: DE-002147023-NVSC2025DE079357

PATIENT
  Sex: Male

DRUGS (2)
  1. AIMOVIG [Suspect]
     Active Substance: ERENUMAB-AOOE
     Indication: Migraine
     Route: 065
  2. UNSPECIFIED INGREDIENT [Concomitant]
     Active Substance: UNSPECIFIED INGREDIENT
     Indication: Product used for unknown indication
     Route: 048

REACTIONS (3)
  - Aortic occlusion [Unknown]
  - Antiphospholipid syndrome [Unknown]
  - Peripheral arterial occlusive disease [Unknown]

NARRATIVE: CASE EVENT DATE: 20250513
